FAERS Safety Report 14685385 (Version 2)
Quarter: 2018Q2

REPORT INFORMATION
  Report Type: Report from Study
  Country: CA (occurrence: CA)
  Receive Date: 20180327
  Receipt Date: 20180418
  Transmission Date: 20180711
  Serious: Yes (Death, Hospitalization)
  Sender: FDA-Public Use
  Company Number: CA-TOLMAR, INC.-2018CA003162

PATIENT

DRUGS (1)
  1. ELIGARD [Suspect]
     Active Substance: LEUPROLIDE ACETATE
     Indication: PROSTATE CANCER
     Dosage: 30 MG, EVERY 4 MOTNHS
     Route: 058
     Dates: start: 20170812, end: 20171202

REACTIONS (2)
  - Dysstasia [Unknown]
  - Pneumonia [Fatal]

NARRATIVE: CASE EVENT DATE: 20180321
